FAERS Safety Report 20484319 (Version 1)
Quarter: 2022Q1

REPORT INFORMATION
  Report Type: Spontaneous
  Country: US (occurrence: None)
  Receive Date: 20220216
  Receipt Date: 20220216
  Transmission Date: 20220423
  Serious: Yes (Disabling)
  Sender: FDA-Public Use
  Company Number: None

PATIENT
  Age: 46 Year
  Sex: Female

DRUGS (2)
  1. CLONAZEPAM [Suspect]
     Active Substance: CLONAZEPAM
     Route: 048
     Dates: start: 20201217, end: 20211104
  2. DIAZEPAM [Suspect]
     Active Substance: DIAZEPAM

REACTIONS (11)
  - Dysstasia [None]
  - Visual impairment [None]
  - Withdrawal syndrome [None]
  - Suicidal ideation [None]
  - Nausea [None]
  - Weight decreased [None]
  - Fatigue [None]
  - Cognitive disorder [None]
  - Impaired driving ability [None]
  - Educational problem [None]
  - Loss of personal independence in daily activities [None]

NARRATIVE: CASE EVENT DATE: 20201217
